FAERS Safety Report 8851047 (Version 1)
Quarter: 2012Q4

REPORT INFORMATION
  Report Type: 
  Country: GB (occurrence: GB)
  Receive Date: 20121019
  Receipt Date: 20121019
  Transmission Date: 20130627
  Serious: Yes (Other)
  Sender: FDA-Public Use
  Company Number: GB-BRISTOL-MYERS SQUIBB COMPANY-17027137

PATIENT
  Age: 86 Year
  Sex: Male

DRUGS (6)
  1. WARFARIN SODIUM [Suspect]
     Indication: ATRIAL FIBRILLATION
  2. MICONAZOLE NITRATE [Interacting]
     Indication: TONGUE DISORDER
  3. NYSTATIN PASTILLES [Concomitant]
  4. DIGOXIN [Concomitant]
  5. BUMETANIDE [Concomitant]
  6. CHLORPHENAMINE [Concomitant]

REACTIONS (3)
  - Tongue ulceration [Recovered/Resolved]
  - Drug interaction [Unknown]
  - International normalised ratio increased [Unknown]
